FAERS Safety Report 15247878 (Version 1)
Quarter: 2018Q3

REPORT INFORMATION
  Report Type: Spontaneous
  Country: PT (occurrence: PT)
  Receive Date: 20180807
  Receipt Date: 20180807
  Transmission Date: 20181010
  Serious: Yes (Disabling)
  Sender: FDA-Public Use
  Company Number: PT-AUROBINDO-AUR-APL-2018-040016

PATIENT
  Age: 76 Year
  Sex: Female

DRUGS (1)
  1. TERBINAFINE TABLET [Suspect]
     Active Substance: TERBINAFINE
     Indication: FUNGAL INFECTION
     Dosage: 250 MILLIGRAM, DAILY
     Route: 048
     Dates: start: 20180713

REACTIONS (5)
  - Renal disorder [Unknown]
  - Paraesthesia [Unknown]
  - Diarrhoea [Unknown]
  - Limb discomfort [Unknown]
  - Polyuria [Unknown]

NARRATIVE: CASE EVENT DATE: 20180716
